FAERS Safety Report 7332004-3 (Version None)
Quarter: 2011Q1

REPORT INFORMATION
  Report Type: 
  Country: None (occurrence: None)
  Receive Date: 20110304
  Receipt Date: 20110215
  Transmission Date: 20110831
  Serious: Yes (Death)
  Sender: FDA-Public Use
  Company Number: US-TYCO HEALTHCARE/MALLINCKRODT-T201100163

PATIENT
  Age: 21 Year
  Sex: Male

DRUGS (2)
  1. OXYCODONE [Suspect]
     Dosage: UNK
  2. ETHANOL [Suspect]
     Dosage: UNK
     Route: 048

REACTIONS (2)
  - INTENTIONAL DRUG MISUSE [None]
  - CARDIO-RESPIRATORY ARREST [None]
